FAERS Safety Report 9881016 (Version 5)
Quarter: 2017Q1

REPORT INFORMATION
  Report Type: Report from Study
  Country: ZA (occurrence: ZA)
  Receive Date: 20140207
  Receipt Date: 20170307
  Transmission Date: 20170429
  Serious: Yes (Death, Other)
  Sender: FDA-Public Use
  Company Number: PHHY2014ZA013316

PATIENT
  Age: 78 Year
  Sex: Female

DRUGS (4)
  1. ACLASTA [Suspect]
     Active Substance: ZOLEDRONIC ACID
     Dosage: 5 MG, PER 100 ML
     Route: 042
     Dates: start: 2013
  2. ACLASTA [Suspect]
     Active Substance: ZOLEDRONIC ACID
     Indication: OSTEOPOROSIS
     Dosage: 5 MG, PER 100 ML
     Route: 042
     Dates: start: 2011
  3. ACLASTA [Suspect]
     Active Substance: ZOLEDRONIC ACID
     Dosage: 5 MG, PER 100 ML
     Route: 042
  4. ACLASTA [Suspect]
     Active Substance: ZOLEDRONIC ACID
     Dosage: 5 MG, PER 100 ML
     Route: 042
     Dates: start: 2015

REACTIONS (5)
  - Rib fracture [Unknown]
  - Osteoporosis [Unknown]
  - Death [Fatal]
  - Pulmonary function test decreased [Unknown]
  - Condition aggravated [Unknown]

NARRATIVE: CASE EVENT DATE: 201606
